FAERS Safety Report 6044829-5 (Version None)
Quarter: 2009Q1

REPORT INFORMATION
  Report Type: 
  Country: None (occurrence: None)
  Receive Date: 20090120
  Receipt Date: 20090112
  Transmission Date: 20090719
  Serious: Yes (Other)
  Sender: FDA-Public Use
  Company Number: US-AMGEN-US326305

PATIENT
  Sex: Male
  Weight: 66.8 kg

DRUGS (23)
  1. NPLATE [Suspect]
     Indication: IDIOPATHIC THROMBOCYTOPENIC PURPURA
     Route: 058
     Dates: start: 20080922, end: 20080929
  2. NPLATE [Suspect]
     Route: 058
     Dates: start: 20081006, end: 20081006
  3. NPLATE [Suspect]
     Route: 058
     Dates: start: 20081013, end: 20081013
  4. NPLATE [Suspect]
     Route: 058
     Dates: start: 20081020, end: 20081020
  5. NPLATE [Suspect]
     Route: 058
     Dates: start: 20081027, end: 20081027
  6. NPLATE [Suspect]
     Route: 058
     Dates: start: 20081103, end: 20081124
  7. NPLATE [Suspect]
     Route: 058
     Dates: start: 20081201, end: 20081222
  8. NPLATE [Suspect]
     Route: 058
     Dates: start: 20081229
  9. FLAGYL [Concomitant]
     Route: 048
  10. LEVAQUIN [Concomitant]
     Route: 048
  11. SYNTHROID [Concomitant]
  12. KLOR-CON [Concomitant]
  13. CALCIUM WITH VITAMIN D [Concomitant]
  14. FLOMAX [Concomitant]
  15. LASIX [Concomitant]
  16. VITAMIN B6 [Concomitant]
  17. VITAMIN B-12 [Concomitant]
  18. NEXIUM [Concomitant]
  19. FOLIC ACID [Concomitant]
     Route: 048
  20. REGLAN [Concomitant]
  21. PRO-AIR (PARKE DAVIS) [Concomitant]
  22. PRAVACHOL [Concomitant]
     Route: 048
  23. SPIRIVA [Concomitant]

REACTIONS (1)
  - CONVULSION [None]
